FAERS Safety Report 24163735 (Version 1)
Quarter: 2024Q3

REPORT INFORMATION
  Report Type: Spontaneous
  Country: US (occurrence: None)
  Receive Date: 20240801
  Receipt Date: 20240801
  Transmission Date: 20241016
  Serious: Yes (Other)
  Sender: ASTRAZENECA
  Company Number: 2024A170256

PATIENT
  Age: 49 Year
  Sex: Male

DRUGS (1)
  1. OSIMERTINIB [Suspect]
     Active Substance: OSIMERTINIB
     Indication: Adenosquamous cell lung cancer
     Route: 048

REACTIONS (2)
  - Malignant neoplasm progression [Unknown]
  - Therapy partial responder [Unknown]
